FAERS Safety Report 6664769-8 (Version None)
Quarter: 2010Q1

REPORT INFORMATION
  Report Type: 
  Country: None (occurrence: None)
  Receive Date: 20100330
  Receipt Date: 20100315
  Transmission Date: 20100710
  Serious: Yes (Life-Threatening, Hospitalization)
  Sender: FDA-Public Use
  Company Number: PD-121

PATIENT
  Age: 36 Year
  Sex: Female

DRUGS (2)
  1. RANITIDINE HCL [Suspect]
     Indication: DYSPEPSIA
     Dosage: 300 MG TABLET X 1, ORAL, TABLET TAKEN 3 YEARS APART
     Route: 048
  2. IBUPROFEN [Concomitant]

REACTIONS (1)
  - ANAPHYLACTIC REACTION [None]
